FAERS Safety Report 13832599 (Version 1)
Quarter: 2017Q3

REPORT INFORMATION
  Report Type: Spontaneous
  Country: US (occurrence: US)
  Receive Date: 20170803
  Receipt Date: 20170803
  Transmission Date: 20171127
  Serious: Yes (Disabling)
  Sender: FDA-Public Use
  Company Number: None

PATIENT
  Age: 65 Year
  Sex: Female
  Weight: 81 kg

DRUGS (7)
  1. BABY ASPIRIN [Concomitant]
     Active Substance: ASPIRIN
  2. VITAMIN C [Concomitant]
     Active Substance: ASCORBIC ACID
  3. HALOPERIDOL. [Suspect]
     Active Substance: HALOPERIDOL
     Indication: MANIA
     Dosage: ?          QUANTITY:1 TABLET(S);?
     Route: 048
     Dates: start: 19810101
  4. OMEPRAZOLE. [Concomitant]
     Active Substance: OMEPRAZOLE
  5. ATIVAN [Concomitant]
     Active Substance: LORAZEPAM
  6. CALCIUM [Concomitant]
     Active Substance: CALCIUM
  7. MULTIVIT/MINERAL [Concomitant]

REACTIONS (8)
  - Depression [None]
  - Mobility decreased [None]
  - Anxiety [None]
  - Eating disorder [None]
  - Starvation [None]
  - Gait inability [None]
  - Urinary retention [None]
  - Urinary incontinence [None]

NARRATIVE: CASE EVENT DATE: 19810101
